FAERS Safety Report 15533763 (Version 3)
Quarter: 2019Q1

REPORT INFORMATION
  Report Type: Spontaneous
  Country: DK (occurrence: DK)
  Receive Date: 20181019
  Receipt Date: 20190321
  Transmission Date: 20190417
  Serious: Yes (Death, Hospitalization)
  Sender: FDA-Public Use
  Company Number: DK-MYLANLABS-2018M1078532

PATIENT
  Age: 74 Year
  Sex: Male
  Weight: 69 kg

DRUGS (12)
  1. SALAZOPYRIN [Suspect]
     Active Substance: SULFASALAZINE
     Dosage: 500 MG, 2X/DAY (1000 MILLIGRAM DAILY)
     Route: 048
     Dates: start: 20171127, end: 20171222
  2. PARACETAMOL [Concomitant]
     Active Substance: ACETAMINOPHEN
     Dosage: 2420 MILLIGRAM DAILY
     Route: 048
     Dates: start: 20170505, end: 20171222
  3. DOMPERIDON                         /00498201/ [Concomitant]
     Active Substance: DOMPERIDONE
     Indication: NAUSEA
     Dosage: UNK
     Route: 048
     Dates: start: 20171113
  4. PANTOPRAZOL                        /01263201/ [Concomitant]
     Active Substance: PANTOPRAZOLE
     Indication: DYSPEPSIA
     Dosage: UNK
     Route: 048
     Dates: start: 201704
  5. IBUPROFEN. [Suspect]
     Active Substance: IBUPROFEN
     Dosage: 400 MG, AS NEEDED, MAX 3 TIMES DAILY
     Route: 048
     Dates: start: 20171222, end: 20171224
  6. AVELUMAB [Suspect]
     Active Substance: AVELUMAB
     Indication: BLADDER TRANSITIONAL CELL CARCINOMA
     Dosage: CYCLIC (EVERY 2ND WEEK)
     Route: 042
     Dates: start: 20171018, end: 20171129
  7. IBUPROFEN. [Suspect]
     Active Substance: IBUPROFEN
     Indication: ABDOMINAL PAIN
     Dosage: 400 MG, AS NEEDED, MAX 3 TIMES DAILY
     Route: 048
     Dates: start: 20171127, end: 20171224
  8. PREDNISOLONE. [Suspect]
     Active Substance: PREDNISOLONE
     Indication: HEPATIC PAIN
     Dosage: 50 MG, 1X/DAY (50 MILLIGRAM DAILY)
     Route: 048
     Dates: start: 20171222
  9. AVELUMAB [Suspect]
     Active Substance: AVELUMAB
     Indication: BLADDER TRANSITIONAL CELL CARCINOMA
     Dosage: CYCLIC (EVERY 2ND WEEK)
     Route: 042
     Dates: start: 20171011, end: 20171129
  10. SALAZOPYRIN [Suspect]
     Active Substance: SULFASALAZINE
     Dosage: UNK
     Route: 048
     Dates: start: 20171018, end: 20171116
  11. SALAZOPYRIN [Suspect]
     Active Substance: SULFASALAZINE
     Indication: RHEUMATOID ARTHRITIS
     Dosage: UNK
     Route: 048
     Dates: start: 2005, end: 20170418
  12. PARACETAMOL [Concomitant]
     Active Substance: ACETAMINOPHEN
     Indication: HEPATIC PAIN
     Dosage: 605 MG, 4X/DAY (2420 MILLIGRAM DAILY)
     Route: 048
     Dates: start: 20170405, end: 20171222

REACTIONS (2)
  - Gastric ulcer haemorrhage [Recovered/Resolved]
  - Neoplasm progression [Fatal]

NARRATIVE: CASE EVENT DATE: 20171222
